FAERS Safety Report 8893666 (Version 2)
Quarter: 2012Q4

REPORT INFORMATION
  Report Type: 
  Country: US (occurrence: US)
  Receive Date: 20121108
  Receipt Date: 20121225
  Transmission Date: 20130627
  Serious: Yes (Other)
  Sender: FDA-Public Use
  Company Number: US-JNJFOC-20121101768

PATIENT
  Sex: Female
  Weight: 72.58 kg

DRUGS (14)
  1. STELARA [Suspect]
     Indication: PSORIASIS
     Route: 058
     Dates: start: 20120229
  2. STELARA [Suspect]
     Indication: PSORIASIS
     Route: 058
     Dates: start: 20120529
  3. STELARA [Suspect]
     Indication: PSORIASIS
     Route: 058
     Dates: start: 20111108
  4. STELARA [Suspect]
     Indication: PSORIASIS
     Route: 058
     Dates: start: 20110809
  5. STELARA [Suspect]
     Indication: PSORIASIS
     Route: 058
     Dates: start: 20110201
  6. STELARA [Suspect]
     Indication: PSORIASIS
     Route: 058
     Dates: start: 20100928
  7. STELARA [Suspect]
     Indication: PSORIASIS
     Route: 058
     Dates: start: 20100819
  8. STELARA [Suspect]
     Indication: PSORIASIS
     Route: 058
     Dates: start: 20110503
  9. METHOTREXATE [Suspect]
     Indication: PSORIASIS
     Route: 065
     Dates: start: 201209
  10. METHOTREXATE [Suspect]
     Indication: PSORIASIS
     Route: 065
     Dates: start: 200707
  11. TRIAMCINOLONE [Concomitant]
     Indication: PSORIASIS
     Route: 065
  12. TRI SPRINTEC [Concomitant]
     Indication: CONTRACEPTION
     Route: 048
  13. B 12 TABLETS [Concomitant]
     Indication: VITAMIN B12 DEFICIENCY
     Route: 065
  14. TACLONEX [Concomitant]
     Indication: PSORIASIS
     Route: 065

REACTIONS (8)
  - Demyelination [Not Recovered/Not Resolved]
  - Psoriasis [Recovering/Resolving]
  - Nausea [Recovering/Resolving]
  - Headache [Recovering/Resolving]
  - Neck pain [Recovering/Resolving]
  - Musculoskeletal pain [Recovering/Resolving]
  - Fatigue [Recovering/Resolving]
  - Vitamin B12 decreased [Unknown]
